FAERS Safety Report 13451907 (Version 1)
Quarter: 2017Q2

REPORT INFORMATION
  Report Type: Spontaneous
  Country: FR (occurrence: FR)
  Receive Date: 20170418
  Receipt Date: 20170418
  Transmission Date: 20170830
  Serious: Yes (Hospitalization)
  Sender: FDA-Public Use
  Company Number: PHHY2017FR054536

PATIENT
  Age: 67 Year
  Sex: Male

DRUGS (8)
  1. FLUOROURACIL. [Suspect]
     Active Substance: FLUOROURACIL
     Indication: HYPOPHARYNGEAL CANCER
     Dosage: 1290 MG, UNK
     Route: 042
     Dates: start: 20130722, end: 20130727
  2. COZAAR [Concomitant]
     Active Substance: LOSARTAN POTASSIUM
     Indication: HYPERTENSION
     Dosage: UNK
  3. CARBOPLATIN. [Suspect]
     Active Substance: CARBOPLATIN
     Indication: HYPOPHARYNGEAL CANCER
     Dosage: 75 MG, QD
     Route: 042
     Dates: start: 20130722, end: 20130722
  4. ZOPHREN [Suspect]
     Active Substance: ONDANSETRON
     Indication: HYPOPHARYNGEAL CANCER
     Dosage: 1 DF (8 MG/4 ML), QD
     Route: 042
     Dates: start: 20130722, end: 20130722
  5. SOLU-MEDROL [Suspect]
     Active Substance: METHYLPREDNISOLONE SODIUM SUCCINATE
     Indication: HYPOPHARYNGEAL CANCER
     Dosage: UNK
     Route: 042
     Dates: start: 20130722, end: 20130727
  6. SOLUPRED [Suspect]
     Active Substance: PREDNISOLONE
     Indication: HYPOPHARYNGEAL CANCER
     Dosage: UNK
     Route: 048
     Dates: start: 20130721, end: 20130723
  7. COZAAR [Concomitant]
     Active Substance: LOSARTAN POTASSIUM
     Dosage: UNK
  8. DOCETAXEL HOSPIRA [Suspect]
     Active Substance: DOCETAXEL
     Indication: HYPOPHARYNGEAL CANCER
     Dosage: 129 MG, QD
     Route: 042
     Dates: start: 20130722, end: 20130722

REACTIONS (3)
  - Pyrexia [Recovered/Resolved]
  - Agranulocytosis [Recovered/Resolved]
  - Thrombocytopenia [Recovered/Resolved]

NARRATIVE: CASE EVENT DATE: 20130729
